FAERS Safety Report 9441829 (Version 2)
Quarter: 2013Q3

REPORT INFORMATION
  Report Type: Spontaneous
  Country: US (occurrence: US)
  Receive Date: 20130806
  Receipt Date: 20130916
  Transmission Date: 20140515
  Serious: No
  Sender: FDA-Public Use
  Company Number: US-PFIZER INC-2013228010

PATIENT
  Age: 63 Year
  Sex: Male

DRUGS (3)
  1. LYRICA [Suspect]
     Indication: PARAESTHESIA
     Dosage: 75 MG, PRN H.S.
     Route: 048
     Dates: start: 20130731, end: 20130830
  2. LYRICA [Suspect]
     Indication: SPINAL COLUMN STENOSIS
  3. LYRICA [Suspect]
     Indication: NEUROPATHY PERIPHERAL

REACTIONS (3)
  - Irritability [Unknown]
  - Depression [Recovered/Resolved]
  - Anxiety [Recovered/Resolved]
